FAERS Safety Report 5200683-2 (Version None)
Quarter: 2006Q4

REPORT INFORMATION
  Report Type: 
  Country: None (occurrence: None)
  Receive Date: 20061016
  Receipt Date: 20060629
  Transmission Date: 20070319
  Serious: No
  Sender: FDA-Public Use
  Company Number: 2006SP002596

PATIENT
  Age: 57 Year
  Sex: Female
  Weight: 104.3273 kg

DRUGS (7)
  1. LUNESTA [Suspect]
     Indication: INSOMNIA
     Dosage: 2 MG;HS;ORAL
     Route: 048
     Dates: start: 20060101
  2. FLEXERIL [Suspect]
     Dosage: 10 MG;PRN;ORAL
     Route: 048
     Dates: start: 20060101
  3. CELEXA [Concomitant]
  4. DAYPRO [Concomitant]
  5. FLEXERIL [Concomitant]
  6. VITAMIN E [Concomitant]
  7. METHADONE HCL [Concomitant]

REACTIONS (2)
  - DRUG EFFECT DECREASED [None]
  - SOMNOLENCE [None]
